FAERS Safety Report 20091993 (Version 1)
Quarter: 2021Q4

REPORT INFORMATION
  Report Type: Spontaneous
  Country: DE (occurrence: DE)
  Receive Date: 20211119
  Receipt Date: 20211119
  Transmission Date: 20220303
  Serious: Yes (Other)
  Sender: FDA-Public Use
  Company Number: None

PATIENT
  Age: 24 Year
  Sex: Male

DRUGS (12)
  1. CISPLATIN [Suspect]
     Active Substance: CISPLATIN
     Indication: Anaplastic large-cell lymphoma
     Dosage: 70 MG/SQ. METER, ADMINISTERED ON DAY 1(22 DAY CYCLE)OVER PERIOD OF 22 HOURS AS CONTINOUS INFUSION
     Route: 042
  2. CISPLATIN [Suspect]
     Active Substance: CISPLATIN
     Dosage: CYCLE REPEATED EVERY 22 DAYS
     Route: 042
  3. DOXORUBICIN [Suspect]
     Active Substance: DOXORUBICIN
     Indication: Anaplastic large-cell lymphoma
     Dosage: UNK UNK, 5 CYCLES
     Route: 065
  4. CYTARABINE [Suspect]
     Active Substance: CYTARABINE
     Indication: Anaplastic large-cell lymphoma
     Dosage: UNK UNK, CYCLE,REPETED EVERY 22 DAYS
     Route: 042
  5. VINCRISTINE [Suspect]
     Active Substance: VINCRISTINE
     Indication: Anaplastic large-cell lymphoma
     Dosage: UNK UNK, 5 CYCLES
  6. BRENTUXIMAB VEDOTIN [Suspect]
     Active Substance: BRENTUXIMAB VEDOTIN
     Indication: Anaplastic large-cell lymphoma
     Dosage: 1.2 MG/KG,GIVEN AS BOLUS DOSE FOR 30 MINUTES ON DAY 0 OF EVERY 22 DAY CYCLE
     Route: 040
  7. BRENTUXIMAB VEDOTIN [Suspect]
     Active Substance: BRENTUXIMAB VEDOTIN
     Dosage: CYCLE REPEATED EVERY 22 DAYS
     Route: 040
  8. CYCLOPHOSPHAMIDE [Suspect]
     Active Substance: CYCLOPHOSPHAMIDE
     Indication: Anaplastic large-cell lymphoma
     Dosage: UNK UNK, 5 CYCLE
     Route: 065
  9. DEXAMETHASONE [Suspect]
     Active Substance: DEXAMETHASONE
     Indication: Anaplastic large-cell lymphoma
     Dosage: CYCLE REPATED EVERY 22 DAYS
     Route: 048
  10. DEXAMETHASONE [Suspect]
     Active Substance: DEXAMETHASONE
     Dosage: 40 MILLIGRAM, CYCLE REPATED EVERY 22 DAYS
  11. PREDNISONE [Suspect]
     Active Substance: PREDNISONE
     Indication: Anaplastic large-cell lymphoma
     Dosage: UNK UNK, 5 CYCLES
     Route: 065
  12. PEGFILGRASTIM [Concomitant]
     Active Substance: PEGFILGRASTIM
     Indication: Prophylaxis
     Dosage: 6 MILLIGRAM
     Route: 058

REACTIONS (5)
  - Drug ineffective [Unknown]
  - Neoplasm progression [Recovered/Resolved]
  - Neutropenia [Unknown]
  - Thrombocytopenia [Unknown]
  - Gastritis [Unknown]
